FAERS Safety Report 9739364 (Version 2)
Quarter: 2013Q4

REPORT INFORMATION
  Report Type: Spontaneous
  Country: US (occurrence: US)
  Receive Date: 20131209
  Receipt Date: 20131209
  Transmission Date: 20140711
  Serious: No
  Sender: FDA-Public Use
  Company Number: US-GLAXOSMITHKLINE-A0899239A

PATIENT
  Age: 52 Year
  Sex: Male
  Weight: 120.5 kg

DRUGS (5)
  1. AVANDAMET [Suspect]
     Indication: TYPE 2 DIABETES MELLITUS
     Dosage: 2TAB TWICE PER DAY
     Route: 048
     Dates: start: 20050901, end: 2006
  2. AVANDARYL [Suspect]
     Indication: TYPE 2 DIABETES MELLITUS
     Dosage: 1TAB TWICE PER DAY
     Route: 048
     Dates: start: 20061208, end: 2010
  3. AVANDIA [Suspect]
     Indication: TYPE 2 DIABETES MELLITUS
     Dosage: 4MG TWICE PER DAY
     Route: 048
     Dates: start: 20040809, end: 2005
  4. AMARYL [Concomitant]
  5. GLUCOPHAGE [Concomitant]

REACTIONS (6)
  - Angina pectoris [Not Recovered/Not Resolved]
  - Chest pain [Unknown]
  - Dyspnoea [Unknown]
  - Muscle spasms [Unknown]
  - Fatigue [Unknown]
  - Hyperhidrosis [Unknown]
